FAERS Safety Report 8028220-8 (Version None)
Quarter: 2012Q1

REPORT INFORMATION
  Report Type: 
  Country: None (occurrence: None)
  Receive Date: 20120106
  Receipt Date: 20120105
  Transmission Date: 20120608
  Serious: Yes (Hospitalization, Other)
  Sender: FDA-Public Use
  Company Number: CN-PFIZER INC-2011297917

PATIENT
  Age: 79 Year
  Sex: Male

DRUGS (2)
  1. DOXEPIN [Concomitant]
  2. LYRICA [Suspect]
     Indication: POST HERPETIC NEURALGIA
     Dosage: UNK
     Route: 048
     Dates: start: 20110101

REACTIONS (2)
  - CARDIAC FAILURE [None]
  - ACUTE CORONARY SYNDROME [None]
